FAERS Safety Report 8384041-8 (Version None)
Quarter: 2012Q2

REPORT INFORMATION
  Report Type: 
  Country: None (occurrence: None)
  Receive Date: 20120524
  Receipt Date: 20120518
  Transmission Date: 20120825
  Serious: No
  Sender: FDA-Public Use
  Company Number: US-BAYER-2012-050110

PATIENT
  Age: 72 Year
  Sex: Female
  Weight: 68 kg

DRUGS (3)
  1. TRAMADOL HYDROCHLORIDE [Concomitant]
  2. NAPROXEN SODIUM [Suspect]
     Indication: ARTHRITIS
     Dosage: 2 DF, ONCE
     Route: 048
     Dates: start: 20120513, end: 20120513
  3. PREMPRO [Concomitant]

REACTIONS (5)
  - RHINORRHOEA [None]
  - ABDOMINAL PAIN UPPER [None]
  - DYSGEUSIA [None]
  - WEIGHT DECREASED [None]
  - VOMITING [None]
